FAERS Safety Report 8094470-8 (Version None)
Quarter: 2012Q1

REPORT INFORMATION
  Report Type: 
  Country: None (occurrence: None)
  Receive Date: 20120130
  Receipt Date: 20120117
  Transmission Date: 20120608
  Serious: Yes (Hospitalization)
  Sender: FDA-Public Use
  Company Number: MX-ELI_LILLY_AND_COMPANY-MX201201005276

PATIENT
  Sex: Male

DRUGS (4)
  1. STRATTERA [Suspect]
     Dosage: 60 MG, UNK
  2. OXCARBAZEPINE [Concomitant]
     Indication: EPILEPSY
     Dosage: 300 MG, BID
     Dates: start: 20110401
  3. STRATTERA [Suspect]
     Dosage: 40 MG, UNK
     Dates: start: 20110901
  4. STRATTERA [Suspect]
     Dosage: 80 MG, UNK

REACTIONS (3)
  - DECREASED APPETITE [None]
  - TACHYCARDIA [None]
  - AGGRESSION [None]
